FAERS Safety Report 18411582 (Version 1)
Quarter: 2020Q4

REPORT INFORMATION
  Report Type: Report from Study
  Country: US (occurrence: US)
  Receive Date: 20201021
  Receipt Date: 20201021
  Transmission Date: 20210114
  Serious: Yes (Other)
  Sender: FDA-Public Use
  Company Number: NVSC2020US279074

PATIENT
  Age: 54 Year
  Sex: Female

DRUGS (2)
  1. ENTRESTO [Suspect]
     Active Substance: SACUBITRIL\VALSARTAN
     Indication: ARRHYTHMIA
  2. ENTRESTO [Suspect]
     Active Substance: SACUBITRIL\VALSARTAN
     Indication: CARDIAC FAILURE
     Dosage: 50 MG, BID (DOSE:24/26 MG)
     Route: 048
     Dates: start: 201905

REACTIONS (3)
  - Dyspnoea [Recovered/Resolved]
  - Arrhythmia [Unknown]
  - Panic attack [Unknown]

NARRATIVE: CASE EVENT DATE: 201911
